FAERS Safety Report 5570753-8 (Version None)
Quarter: 2007Q4

REPORT INFORMATION
  Report Type: 
  Country: None (occurrence: None)
  Receive Date: 20071221
  Receipt Date: 20071004
  Transmission Date: 20080405
  Serious: No
  Sender: FDA-Public Use
  Company Number: US-BAUSCH-2007BL003618

PATIENT
  Sex: Female

DRUGS (1)
  1. ZYLET [Suspect]
     Indication: CONJUNCTIVITIS
     Route: 047
     Dates: start: 20070928, end: 20071001

REACTIONS (6)
  - ABNORMAL SENSATION IN EYE [None]
  - EYE IRRITATION [None]
  - EYE PAIN [None]
  - HEADACHE [None]
  - KERATOCONJUNCTIVITIS SICCA [None]
  - PHOTOPHOBIA [None]
